FAERS Safety Report 7951784-7 (Version None)
Quarter: 2011Q4

REPORT INFORMATION
  Report Type: 
  Country: None (occurrence: None)
  Receive Date: 20111201
  Receipt Date: 20111120
  Transmission Date: 20120403
  Serious: Yes (Hospitalization, Other)
  Sender: FDA-Public Use
  Company Number: NO-BAXTER-2011BH036199

PATIENT
  Sex: Female

DRUGS (3)
  1. GAMMAGARD LIQUID [Suspect]
     Indication: OFF LABEL USE
     Route: 065
  2. GAMMAGARD LIQUID [Suspect]
     Indication: GUILLAIN-BARRE SYNDROME
     Route: 065
  3. UNSPECIFIED OSTEOPOROSIS MEDICATION [Concomitant]
     Indication: OSTEOPOROSIS
     Route: 065

REACTIONS (3)
  - PARALYSIS [None]
  - APHASIA [None]
  - CEREBROVASCULAR ACCIDENT [None]
